FAERS Safety Report 8255515-5 (Version None)
Quarter: 2012Q1

REPORT INFORMATION
  Report Type: 
  Country: None (occurrence: None)
  Receive Date: 20120322
  Receipt Date: 20120109
  Transmission Date: 20120608
  Serious: Yes (Hospitalization)
  Sender: FDA-Public Use
  Company Number: UTC-013011

PATIENT
  Age: 47 Year
  Sex: Female
  Weight: 65.9 kg

DRUGS (4)
  1. TYVASO [Suspect]
     Indication: PULMONARY ARTERIAL HYPERTENSION
     Dosage: 288 MCG (72 MCG, 4 IN 1 D) INHALATION
     Route: 055
     Dates: start: 20110426
  2. COUMADIN [Concomitant]
  3. REVATIO [Concomitant]
  4. TRACLEER [Concomitant]

REACTIONS (3)
  - DRUG ABUSE [None]
  - DRUG WITHDRAWAL SYNDROME [None]
  - CHEST PAIN [None]
